FAERS Safety Report 15157025 (Version 1)
Quarter: 2018Q3

REPORT INFORMATION
  Report Type: Spontaneous
  Country: US (occurrence: US)
  Receive Date: 20180718
  Receipt Date: 20180718
  Transmission Date: 20181010
  Serious: No
  Sender: FDA-Public Use
  Company Number: US-CIPLA LTD.-2017US16012

PATIENT

DRUGS (1)
  1. WARFARIN [Suspect]
     Active Substance: WARFARIN
     Indication: THROMBOSIS
     Dosage: UNK, 1 TAB SOMEDAYS AND OTHER DAYS HALF A TAB
     Route: 065
     Dates: start: 2015

REACTIONS (5)
  - Diarrhoea [Unknown]
  - Dizziness [Unknown]
  - Chromaturia [Unknown]
  - Malaise [Unknown]
  - International normalised ratio fluctuation [Unknown]
